FAERS Safety Report 24747455 (Version 2)
Quarter: 2025Q1

REPORT INFORMATION
  Report Type: Report from Study
  Country: US (occurrence: US)
  Receive Date: 20241218
  Receipt Date: 20250113
  Transmission Date: 20250409
  Serious: Yes (Other)
  Sender: ABBVIE
  Company Number: US-ABBVIE-6048059

PATIENT
  Sex: Male
  Weight: 78.017 kg

DRUGS (1)
  1. SKYRIZI [Suspect]
     Active Substance: RISANKIZUMAB-RZAA
     Indication: Psoriasis
     Dosage: LAST ADMIN DATE- 2023
     Route: 058
     Dates: start: 20230202

REACTIONS (7)
  - Neuropathy peripheral [Recovered/Resolved]
  - Skin ulcer [Recovered/Resolved]
  - Psoriasis [Not Recovered/Not Resolved]
  - Skin ulcer [Unknown]
  - Ankle fracture [Recovered/Resolved]
  - Pain of skin [Unknown]
  - Procedural pain [Not Recovered/Not Resolved]
